FAERS Safety Report 5926711-4 (Version None)
Quarter: 2008Q4

REPORT INFORMATION
  Report Type: 
  Country: None (occurrence: None)
  Receive Date: 20081017
  Receipt Date: 20081002
  Transmission Date: 20090506
  Serious: Yes (Hospitalization)
  Sender: FDA-Public Use
  Company Number: 2008BI027239

PATIENT
  Age: 81 Year
  Sex: Female

DRUGS (7)
  1. ZEVALIN [Suspect]
     Indication: LYMPHOMA
     Dosage: 1X; IV
     Route: 042
     Dates: start: 20080807, end: 20080807
  2. RITUXIMAB [Concomitant]
  3. MOLSIDOMINE [Concomitant]
  4. EMCORETIC [Concomitant]
  5. MEDROL [Concomitant]
  6. OMEPRAZOLE EG [Concomitant]
  7. PROGOR [Concomitant]

REACTIONS (2)
  - ACUTE CORONARY SYNDROME [None]
  - DYSPNOEA [None]
